FAERS Safety Report 17392529 (Version 1)
Quarter: 2020Q1

REPORT INFORMATION
  Report Type: Spontaneous
  Country: FR (occurrence: FR)
  Receive Date: 20200207
  Receipt Date: 20200207
  Transmission Date: 20200409
  Serious: Yes (Life-Threatening, Hospitalization)
  Sender: FDA-Public Use
  Company Number: NVSC2020FR029406

PATIENT
  Age: 101 Year
  Sex: Male
  Weight: 74 kg

DRUGS (4)
  1. HEMIGOXINE NATIVELLE [Suspect]
     Active Substance: DIGOXIN
     Indication: WRONG PATIENT RECEIVED PRODUCT
     Dosage: 0.13 MG, ONCE/SINGLE
     Route: 048
     Dates: start: 20191028, end: 20191028
  2. TOPALGIC (SUPROFEN) [Suspect]
     Active Substance: SUPROFEN
     Indication: WRONG PATIENT RECEIVED PRODUCT
     Dosage: 100 MG, ONCE/SINGLE
     Route: 048
     Dates: start: 20191028, end: 20191028
  3. BISOPROLOL [Suspect]
     Active Substance: BISOPROLOL
     Indication: WRONG PATIENT RECEIVED PRODUCT
     Dosage: 5 MG, ONCE/SINGLE
     Route: 048
     Dates: start: 20191028, end: 20191028
  4. LASILIX SPECIAL [Suspect]
     Active Substance: FUROSEMIDE
     Indication: WRONG PATIENT RECEIVED PRODUCT
     Dosage: 1 OT, ONCE/SINGLE
     Route: 042
     Dates: start: 20191028, end: 20191028

REACTIONS (6)
  - Pneumonia aspiration [Recovering/Resolving]
  - Wrong patient received product [Recovered/Resolved]
  - Bradycardia [Recovered/Resolved]
  - Hypotension [Recovered/Resolved]
  - Acute kidney injury [Recovering/Resolving]
  - Vomiting [Recovered/Resolved]

NARRATIVE: CASE EVENT DATE: 20191028
